FAERS Safety Report 9780611 (Version 2)
Quarter: 2014Q1

REPORT INFORMATION
  Report Type: Spontaneous
  Country: US (occurrence: US)
  Receive Date: 20131224
  Receipt Date: 20140110
  Transmission Date: 20141002
  Serious: No
  Sender: FDA-Public Use
  Company Number: US-JNJFOC-20131213635

PATIENT
  Age: 75 Year
  Sex: Female
  Weight: 72.58 kg

DRUGS (1)
  1. SANDOZ FENTANYL TRANSDERMAL SYSTEM [Suspect]
     Indication: ARTHRALGIA
     Route: 062
     Dates: start: 20131218

REACTIONS (6)
  - Wrong technique in drug usage process [Not Recovered/Not Resolved]
  - Product packaging issue [Unknown]
  - Product quality issue [Recovering/Resolving]
  - Product adhesion issue [Recovering/Resolving]
  - Wrong technique in drug usage process [Recovering/Resolving]
  - Product quality issue [Recovering/Resolving]
